FAERS Safety Report 4482986-2 (Version None)
Quarter: 2004Q4

REPORT INFORMATION
  Report Type: 
  Country: None (occurrence: None)
  Receive Date: 20041022
  Receipt Date: 20041013
  Transmission Date: 20050328
  Serious: Yes (Death)
  Sender: FDA-Public Use
  Company Number: JP-MERCK-0410USA02805

PATIENT
  Age: 87 Year
  Sex: Male
  Weight: 73 kg

DRUGS (9)
  1. PRIMAXIN [Suspect]
     Indication: PNEUMONIA
     Route: 042
     Dates: start: 20040908, end: 20040913
  2. ALLOPURINOL [Concomitant]
     Indication: HYPERURICAEMIA
     Route: 048
     Dates: start: 20040915, end: 20040921
  3. LOXOPROFEN SODIUM [Concomitant]
     Indication: UPPER RESPIRATORY TRACT INFLAMMATION
     Route: 048
     Dates: start: 20040915, end: 20040921
  4. CEFOTIAM HYDROCHLORIDE [Concomitant]
     Indication: PNEUMONIA
     Route: 042
     Dates: start: 20040903, end: 20040907
  5. VITAMIN E NICOTINATE [Concomitant]
     Route: 048
  6. TIZANIDINE HYDROCHLORIDE [Concomitant]
     Route: 048
  7. MECOBALAMIN [Concomitant]
     Route: 048
  8. AROTINOLOL HYDROCHLORIDE [Concomitant]
     Route: 048
  9. BIOFERMIN [Concomitant]
     Route: 048

REACTIONS (3)
  - HEPATIC FUNCTION ABNORMAL [None]
  - RENAL IMPAIRMENT [None]
  - STOMATITIS [None]
